FAERS Safety Report 5288180-X (Version None)
Quarter: 2007Q2

REPORT INFORMATION
  Report Type: 
  Country: None (occurrence: None)
  Receive Date: 20070402
  Receipt Date: 20070402
  Transmission Date: 20071010
  Serious: Yes (Hospitalization)
  Sender: FDA-Public Use
  Company Number: None

PATIENT
  Age: 91 Year
  Sex: Female
  Weight: 64 kg

DRUGS (1)
  1. FENTANYL [Suspect]
     Indication: BACK PAIN
     Dosage: 50MCG/HR EVERY 72 HOURS TRANSDERMAL
     Route: 062
     Dates: start: 20070313, end: 20070313

REACTIONS (1)
  - LOSS OF CONSCIOUSNESS [None]
